APPROVED DRUG PRODUCT: ANDROGEL
Active Ingredient: TESTOSTERONE
Strength: 50MG/5GM PACKET **Federal Register determination that product was not discontinued or withdrawn for safety or effectiveness reasons**
Dosage Form/Route: GEL;TRANSDERMAL
Application: N021015 | Product #002 | TE Code: AB1
Applicant: BESINS HEALTHCARE IRELAND LTD
Approved: Feb 28, 2000 | RLD: Yes | RS: No | Type: RX